FAERS Safety Report 17422804 (Version 1)
Quarter: 2020Q1

REPORT INFORMATION
  Report Type: Spontaneous
  Country: DE (occurrence: DE)
  Receive Date: 20200215
  Receipt Date: 20200215
  Transmission Date: 20200409
  Serious: Yes (Other)
  Sender: FDA-Public Use
  Company Number: PHHY2019DE122460

PATIENT
  Age: 69 Year
  Sex: Male
  Weight: 92 kg

DRUGS (30)
  1. CALCIUM FOLINATE [Suspect]
     Active Substance: LEUCOVORIN CALCIUM
     Dosage: 830 MG (830 UNK)
     Route: 065
     Dates: start: 20190619
  2. FLUOROURACIL. [Suspect]
     Active Substance: FLUOROURACIL
     Dosage: 4940 MG (4940 MILLIGRAM )
     Route: 042
     Dates: start: 20190814
  3. IRINOTECAN [Suspect]
     Active Substance: IRINOTECAN
     Dosage: 374 MG (374 UNK)
     Route: 065
     Dates: start: 20190619
  4. IRINOTECAN [Suspect]
     Active Substance: IRINOTECAN
     Dosage: 373 MG (373 UNK)
     Route: 065
     Dates: start: 20190925
  5. CALCIUM FOLINATE [Suspect]
     Active Substance: LEUCOVORIN CALCIUM
     Indication: COLORECTAL CANCER METASTATIC
     Dosage: 830 MG, UNK (830 MILLIGRAM)
     Route: 065
     Dates: start: 20190306
  6. CALCIUM FOLINATE [Suspect]
     Active Substance: LEUCOVORIN CALCIUM
     Dosage: 820 MG (820 UNK)
     Route: 065
     Dates: start: 20190814
  7. CALCIUM FOLINATE [Suspect]
     Active Substance: LEUCOVORIN CALCIUM
     Dosage: 830 MG (830 MILLIGRAM)
     Route: 065
     Dates: start: 20190925
  8. ESIDRIX [Concomitant]
     Active Substance: HYDROCHLOROTHIAZIDE
     Indication: OEDEMA
     Dosage: 25 MG, QD (25 MILLIGRAM, QD)
     Route: 048
     Dates: start: 20190402, end: 201905
  9. DEXAMETHASONE. [Concomitant]
     Active Substance: DEXAMETHASONE
     Indication: PROPHYLAXIS
     Dosage: 8 MG ( 8 MILLIGRAM, PER CYCLE )
     Route: 042
     Dates: start: 20190306, end: 20190927
  10. PANTOZOL [Concomitant]
     Active Substance: PANTOPRAZOLE SODIUM
     Indication: PROPHYLAXIS
     Dosage: 40 MG, QD (40 MILLIGRAM, QD)
     Route: 048
     Dates: start: 201601
  11. JODID [Concomitant]
     Active Substance: IODINE
     Indication: HYPOTHYROIDISM
     Dosage: 200 MICROGRAM, QD (200 MICROGRAM, QD)
     Route: 048
     Dates: start: 1989, end: 201905
  12. VECTIBIX [Suspect]
     Active Substance: PANITUMUMAB
     Indication: COLORECTAL CANCER METASTATIC
     Dosage: 552 MG (552 MILLIGRAM)
     Route: 042
     Dates: start: 20190306
  13. NOVALGIN [Concomitant]
     Indication: PAIN
     Dosage: 500 MG, UNK (500 MILLIGRAM, AS NECESSARY)
     Route: 048
     Dates: start: 201902, end: 2019
  14. FLUOROURACIL. [Suspect]
     Active Substance: FLUOROURACIL
     Indication: COLORECTAL CANCER METASTATIC
     Dosage: 4990 MG, UNK (4990 MILLIGRAM)
     Route: 042
     Dates: start: 20190306
  15. IRINOTECAN [Suspect]
     Active Substance: IRINOTECAN
     Dosage: 376 MG (376 MILLIGRAM )
     Route: 065
     Dates: start: 20190527
  16. IRINOTECAN [Suspect]
     Active Substance: IRINOTECAN
     Dosage: 371 MG (371 UNK)
     Route: 065
     Dates: start: 20190814
  17. QUILONUM [Concomitant]
     Active Substance: LITHIUM
     Indication: BIPOLAR DISORDER
     Dosage: 850 MG (850 MILLIGRAM)
     Route: 048
     Dates: start: 1989
  18. FLUOROURACIL. [Suspect]
     Active Substance: FLUOROURACIL
     Dosage: 4990 MG (4990 UNK)
     Route: 042
     Dates: start: 20190619
  19. PARACETAMOL [Concomitant]
     Active Substance: ACETAMINOPHEN
     Indication: PAIN
     Dosage: 500 MG, PRN (500 MILLIGRAM, AS NECESSARY)
     Route: 048
     Dates: start: 201902, end: 2019
  20. MINICYCLINE [Concomitant]
     Active Substance: MINOCYCLINE HYDROCHLORIDE
     Indication: PRODUCT USED FOR UNKNOWN INDICATION
     Dosage: 50 MG, QD
     Route: 048
     Dates: start: 201904
  21. ATROPINE. [Concomitant]
     Active Substance: ATROPINE
     Indication: PROPHYLAXIS
     Dosage: 0.25 MG (0.25 MILLIGRAM, PER CYCLE)
     Route: 058
     Dates: start: 20190306, end: 20190925
  22. FLUOROURACIL. [Suspect]
     Active Substance: FLUOROURACIL
     Dosage: 830 MG, UNK (830 MILLIGRAM)
     Route: 040
     Dates: start: 20190306
  23. FLUOROURACIL. [Suspect]
     Active Substance: FLUOROURACIL
     Dosage: 5020 MG, UNK (5020 MILLIGRAM)
     Route: 042
     Dates: start: 20190527
  24. FLUOROURACIL. [Suspect]
     Active Substance: FLUOROURACIL
     Dosage: 4970 MG (4970 MILLIGRAM)
     Route: 042
     Dates: start: 20190925
  25. IRINOTECAN [Suspect]
     Active Substance: IRINOTECAN
     Indication: COLORECTAL CANCER METASTATIC
     Dosage: 374 MG, UNK ( 374 MILLIGRAM )
     Route: 065
     Dates: start: 20190306
  26. GRANISETRON [Concomitant]
     Active Substance: GRANISETRON
     Indication: PROPHYLAXIS
     Dosage: UNK (1-4 MILLIGRAM, PER CYCLE)
     Route: 065
     Dates: start: 20190306, end: 20190927
  27. CALCIUM FOLINATE [Suspect]
     Active Substance: LEUCOVORIN CALCIUM
     Dosage: 840 MG, UNK (840 MILLIGRAM)
     Route: 065
     Dates: start: 20190513
  28. FLUOROURACIL. [Suspect]
     Active Substance: FLUOROURACIL
     Dosage: 5060 MG, UNK
     Route: 042
     Dates: start: 20190513
  29. IRINOTECAN [Suspect]
     Active Substance: IRINOTECAN
     Dosage: 380 MG, UNK (380 MILLIGRAM)
     Route: 065
     Dates: start: 20190513
  30. APREPITANT. [Concomitant]
     Active Substance: APREPITANT
     Indication: PROPHYLAXIS
     Dosage: 150 MG (150 MILLIGRAM, PER CYCLE)
     Route: 042
     Dates: start: 20190306, end: 20190402

REACTIONS (1)
  - Subcutaneous abscess [Recovered/Resolved]

NARRATIVE: CASE EVENT DATE: 20190407
